FAERS Safety Report 8239677-1 (Version None)
Quarter: 2012Q1

REPORT INFORMATION
  Report Type: 
  Country: None (occurrence: None)
  Receive Date: 20120328
  Receipt Date: 20120319
  Transmission Date: 20120608
  Serious: Yes (Other)
  Sender: FDA-Public Use
  Company Number: BR-BAYER-2012-020041

PATIENT
  Age: 21 Year
  Sex: Female
  Weight: 49 kg

DRUGS (1)
  1. YASMIN [Suspect]
     Indication: CONTRACEPTION
     Dosage: 1 DF, QD
     Route: 048
     Dates: start: 20110101

REACTIONS (5)
  - POLLAKIURIA [None]
  - ABDOMINAL PAIN [None]
  - BLOOD URINE PRESENT [None]
  - DIARRHOEA [None]
  - DYSURIA [None]
